FAERS Safety Report 21415533 (Version 2)
Quarter: 2022Q4

REPORT INFORMATION
  Report Type: Other
  Country: US (occurrence: None)
  Receive Date: 20221006
  Receipt Date: 20221021
  Transmission Date: 20230113
  Serious: Yes (Other)
  Sender: FDA-Public Use
  Company Number: US-ROCHE-3193656

PATIENT
  Age: 25 Year
  Sex: Female

DRUGS (1)
  1. RITUXAN [Suspect]
     Active Substance: RITUXIMAB
     Indication: Eye movement disorder
     Dosage: INFUSE 1000 MG INTRAVENOUSLY EVERY WEEK FOR 4 WEEK(S), REPEAT EVERY 4 MONTH(S)
     Route: 042

REACTIONS (2)
  - Facial paralysis [Unknown]
  - Off label use [Unknown]
